FAERS Safety Report 12192967 (Version 2)
Quarter: 2016Q1

REPORT INFORMATION
  Report Type: Spontaneous
  Country: US (occurrence: US)
  Receive Date: 20160318
  Receipt Date: 20160325
  Transmission Date: 20160526
  Serious: Yes (Hospitalization, Other)
  Sender: FDA-Public Use
  Company Number: US-PFIZER INC-2016166258

PATIENT
  Age: 47 Year
  Sex: Male

DRUGS (33)
  1. FLUCONAZOLE. [Suspect]
     Active Substance: FLUCONAZOLE
     Dosage: 150 MG, UNK
  2. FUROSEMIDE. [Suspect]
     Active Substance: FUROSEMIDE
     Dosage: 40 MG, UNK
  3. FAMCICLOVIR. [Suspect]
     Active Substance: FAMCICLOVIR
     Dosage: 500 MG, UNK
  4. LIORESAL [Suspect]
     Active Substance: BACLOFEN
     Indication: MUSCLE SPASTICITY
     Dosage: 1299.8 UG, DAILY
     Route: 037
  5. METOPROLOL TARTRATE. [Suspect]
     Active Substance: METOPROLOL TARTRATE
     Dosage: 25 MG, UNK
     Route: 048
  6. OXYCODONE AND ACETAMINOPHEN [Suspect]
     Active Substance: ACETAMINOPHEN\OXYCODONE HYDROCHLORIDE
     Dosage: 10/325 MG
  7. POLYETHYLENE GLYCOL [Suspect]
     Active Substance: POLYETHYLENE GLYCOLS
     Dosage: 17 G, UNK
     Route: 048
  8. VITAMIN D2 [Suspect]
     Active Substance: ERGOCALCIFEROL
     Dosage: 50000 IU, WEEKLY
  9. WARFARIN [Suspect]
     Active Substance: WARFARIN
     Dosage: 2.5 MG, UNK
  10. LIORESAL [Suspect]
     Active Substance: BACLOFEN
     Dosage: 599.6 UG, DAILY
     Route: 037
     Dates: start: 201509
  11. SPIRONOLACTONE. [Suspect]
     Active Substance: SPIRONOLACTONE
     Dosage: 25 MG, UNK
  12. CIPROFLOXACIN. [Suspect]
     Active Substance: CIPROFLOXACIN
     Dosage: 500 MG, DAILY
  13. DONEPEZIL HCL [Suspect]
     Active Substance: DONEPEZIL HYDROCHLORIDE
     Dosage: UNK, DAILY
  14. SERTRALINE HCL [Suspect]
     Active Substance: SERTRALINE HYDROCHLORIDE
     Dosage: 100 MG, DAILY
  15. NYSTATIN. [Suspect]
     Active Substance: NYSTATIN
     Dosage: 100000 IU/ML, UNK
     Route: 048
  16. MELATONIN [Suspect]
     Active Substance: MELATONIN
     Dosage: 6 MG, DAILY
  17. LIORESAL [Suspect]
     Active Substance: BACLOFEN
     Dosage: 1200 UG, DAILY
     Route: 037
  18. LIORESAL [Suspect]
     Active Substance: BACLOFEN
     Dosage: 955.6 UG, DAILY
     Route: 037
     Dates: start: 20151026, end: 20151028
  19. ESOMEPRAZOLE MAGNESIUM. [Suspect]
     Active Substance: ESOMEPRAZOLE MAGNESIUM
     Dosage: 40 MG, UNK
  20. AMOXICILLIN, CLAVULANIC ACID [Suspect]
     Active Substance: AMOXICILLIN\CLAVULANIC ACID
     Dosage: 0.5 MG, UNK
  21. TRAZODONE [Suspect]
     Active Substance: TRAZODONE HYDROCHLORIDE
     Dosage: 50 MG, DAILY
  22. WARFARIN [Suspect]
     Active Substance: WARFARIN
     Dosage: 4 MG, UNK
     Route: 065
  23. AMANTADINE [Suspect]
     Active Substance: AMANTADINE
     Dosage: 100 UG, UNK
  24. LIORESAL [Suspect]
     Active Substance: BACLOFEN
     Dosage: 1299 UG, DAILY
     Route: 037
  25. LIORESAL [Suspect]
     Active Substance: BACLOFEN
     Dosage: 831.6 UG, DAILY
     Route: 037
     Dates: end: 20151026
  26. POTASSIUM CHLORIDE. [Suspect]
     Active Substance: POTASSIUM CHLORIDE
     Dosage: 20 MEQ, UNK
  27. KETOCONAZOLE. [Suspect]
     Active Substance: KETOCONAZOLE
     Dosage: UNK
  28. PANTOPRAZOLE [Suspect]
     Active Substance: PANTOPRAZOLE SODIUM
     Dosage: 40 MG, UNK
     Route: 065
  29. ALPRAZOLAM. [Suspect]
     Active Substance: ALPRAZOLAM
     Dosage: 0.5 MG, UNK
  30. LYRICA [Suspect]
     Active Substance: PREGABALIN
     Dosage: 75 MG, UNK
  31. MIRTAZAPINE. [Suspect]
     Active Substance: MIRTAZAPINE
     Dosage: 15 MG, DAILY
  32. DOCQLACE [Suspect]
     Active Substance: DOCUSATE SODIUM
     Dosage: 100 MG, UNK
  33. LIORESAL [Suspect]
     Active Substance: BACLOFEN
     Dosage: 1050.1 UG, DAILY
     Route: 037
     Dates: start: 20151028

REACTIONS (16)
  - Respiratory distress [Unknown]
  - Urinary incontinence [Unknown]
  - Dyspnoea [Recovered/Resolved]
  - Musculoskeletal stiffness [Unknown]
  - Bladder dilatation [Unknown]
  - Abdominal distension [Unknown]
  - Urinary retention [Unknown]
  - Oedema peripheral [Unknown]
  - Heart rate increased [Recovered/Resolved]
  - Muscle spasms [Unknown]
  - Blood pressure increased [Recovered/Resolved]
  - Performance status decreased [Unknown]
  - Subcutaneous abscess [Unknown]
  - Hypertonia [Unknown]
  - No therapeutic response [Unknown]
  - Muscle tightness [Unknown]

NARRATIVE: CASE EVENT DATE: 20150428
